FAERS Safety Report 17120931 (Version 1)
Quarter: 2019Q4

REPORT INFORMATION
  Report Type: Spontaneous
  Country: US (occurrence: US)
  Receive Date: 20191206
  Receipt Date: 20191206
  Transmission Date: 20200122
  Serious: No
  Sender: FDA-Public Use
  Company Number: US-UCBSA-2017028511

PATIENT
  Sex: Male

DRUGS (2)
  1. VIMPAT [Suspect]
     Active Substance: LACOSAMIDE
     Dosage: 4 TABLETS DAILY (1 TAB PO DURING DAY, 1 TAB PO IN EVENING, AND 2 TABS PO AT 10:30PM)
     Route: 048
     Dates: start: 201705
  2. VIMPAT [Suspect]
     Active Substance: LACOSAMIDE
     Indication: EPILEPSY
     Dosage: 3 TABLETS DAILY
     Route: 048
     Dates: end: 2017

REACTIONS (2)
  - Intentional product misuse [Unknown]
  - Seizure [Not Recovered/Not Resolved]

NARRATIVE: CASE EVENT DATE: 201701
